FAERS Safety Report 5487947-2 (Version None)
Quarter: 2007Q3

REPORT INFORMATION
  Report Type: 
  Country: None (occurrence: None)
  Receive Date: 20070925
  Receipt Date: 20070809
  Transmission Date: 20080115
  Serious: No
  Sender: FDA-Public Use
  Company Number: 2007US001509

PATIENT
  Sex: Female

DRUGS (9)
  1. VESICARE [Suspect]
     Indication: DRUG USE FOR UNKNOWN INDICATION
     Dosage: 5 MG, UID/QD, ORAL; 10 MG, UID/QD, ORAL
     Route: 048
     Dates: start: 20061201, end: 20070610
  2. VESICARE [Suspect]
     Indication: DRUG USE FOR UNKNOWN INDICATION
     Dosage: 5 MG, UID/QD, ORAL; 10 MG, UID/QD, ORAL
     Route: 048
  3. DIGOXIN [Concomitant]
  4. FOSAMAX [Concomitant]
  5. HYZAAR [Concomitant]
  6. ZOCOR [Concomitant]
  7. COUMADIN [Concomitant]
  8. LYRICA [Concomitant]
  9. ESTRACE [Concomitant]

REACTIONS (4)
  - CONFUSIONAL STATE [None]
  - DIZZINESS [None]
  - FATIGUE [None]
  - SOMNOLENCE [None]
